FAERS Safety Report 16284727 (Version 2)
Quarter: 2019Q3

REPORT INFORMATION
  Report Type: Spontaneous
  Country: US (occurrence: US)
  Receive Date: 20190508
  Receipt Date: 20190723
  Transmission Date: 20191004
  Serious: No
  Sender: FDA-Public Use
  Company Number: US-TEVA-2019-US-1039282

PATIENT
  Age: 63 Year
  Sex: Female
  Weight: 102 kg

DRUGS (21)
  1. ROXICODONE [Concomitant]
     Active Substance: OXYCODONE HYDROCHLORIDE
     Indication: PAIN
     Dosage: TAKE 1 TABLET BY MOUTH EVERY 4 HOURS AS NEEDED FOR PAIN. ?PATIENT TAKING DIFFERENTLY: TAKE 5-10 MG B
     Route: 048
  2. NORVASC [Concomitant]
     Active Substance: AMLODIPINE BESYLATE
     Dosage: 5 MILLIGRAM DAILY; TAKE 1 TABLET BY MOUTH EVERY DAY
     Route: 048
  3. KENALOG 0.1% [Concomitant]
     Dosage: APPLY SPARINGLY EXTERNALLY TO THE AFFECTED AREA TWICE DAILY
     Route: 061
  4. ZOFRAN [Concomitant]
     Active Substance: ONDANSETRON HYDROCHLORIDE
     Indication: VOMITING
     Route: 048
  5. CLOTRIMAZOLE. [Concomitant]
     Active Substance: CLOTRIMAZOLE
     Dosage: APPLY TOPICALLY 2 TIMES DAILY AS NEEDED (RASH). APPLY TO THE AFFECTED AREA(S) TWICE DAILY
     Route: 061
  6. DURAGESIC [Concomitant]
     Active Substance: FENTANYL
     Dosage: PLACE 1 PATCH TO SKIN EVERY 72 HOURS
  7. TENORMIN [Concomitant]
     Active Substance: ATENOLOL
     Route: 048
  8. AJOVY [Suspect]
     Active Substance: FREMANEZUMAB-VFRM
     Indication: MIGRAINE
     Dosage: 225MG/1.5 ML
     Dates: start: 20190110
  9. VITAMIN D3 [Concomitant]
     Active Substance: CHOLECALCIFEROL
     Dosage: TAKE 2 TABLETS BY MOUTH DAILY
     Route: 048
  10. MAXALT [Concomitant]
     Active Substance: RIZATRIPTAN BENZOATE
     Indication: MIGRAINE
     Dosage: TAKE 1 TABLET BY MOUTH ONCE AS NEEDED FOR MIGRAINE FOR UP TO 1 DOSE
     Route: 048
  11. BACLOFEN. [Concomitant]
     Active Substance: BACLOFEN
  12. NYSTATIN. [Concomitant]
     Active Substance: NYSTATIN
     Route: 061
  13. ZOFRAN [Concomitant]
     Active Substance: ONDANSETRON HYDROCHLORIDE
     Indication: NAUSEA
  14. ZINC-VIT C-PYRIDOXINE, VIT B6 [Concomitant]
     Dosage: TAKE 1 CAPSULE BY MOUTH DAILY
     Route: 048
  15. TYLONOL EXTRA STRENGTH [Concomitant]
     Dosage: TAKE 1 TABLET BY MOUTH EVERY 4 HOURS AS NEEDED. DO NOT EXCEED 3000 MG OF ACETAMINOPHEN FROM ALL SOUR
     Route: 048
  16. LAMISIL [Concomitant]
     Active Substance: TERBINAFINE HYDROCHLORIDE
  17. MILK THISTLE SEED EXTRACT [Concomitant]
     Active Substance: DIETARY SUPPLEMENT\HERBALS\MILK THISTLE
     Dosage: 200 MILLIGRAM DAILY; TAKE 1 CAPSULE BY MOUTH DAILY
     Route: 048
  18. RETAINE CMC 0.5% [Concomitant]
     Dosage: INSTILL 1 DROP IN BOTH EYES 4 TIMES DAILY
  19. DELTASONE [Concomitant]
     Active Substance: PREDNISONE
     Dosage: TAKE 1 TABLET BY MOUTH DAILY. TAKE WITH FOOD
     Route: 048
  20. PEPCID [Concomitant]
     Active Substance: FAMOTIDINE
     Dosage: TAKE 20 MG BY MOUTH DAILY AS NEEDED
     Route: 048
  21. MYRBETRIQ [Concomitant]
     Active Substance: MIRABEGRON
     Dosage: TAKE 1 TABLET BY MOUTH DAILY
     Route: 048

REACTIONS (7)
  - Rash erythematous [Recovered/Resolved]
  - Injection site urticaria [Recovered/Resolved]
  - Rash pruritic [Recovered/Resolved]
  - Rash papular [Recovering/Resolving]
  - Urticaria thermal [Recovered/Resolved]
  - Erythema [Recovered/Resolved]
  - Skin reaction [Recovered/Resolved]

NARRATIVE: CASE EVENT DATE: 201904
